FAERS Safety Report 21902388 (Version 1)
Quarter: 2023Q1

REPORT INFORMATION
  Report Type: Spontaneous
  Country: US (occurrence: US)
  Receive Date: 20230124
  Receipt Date: 20230124
  Transmission Date: 20230418
  Serious: Yes (Death)
  Sender: FDA-Public Use
  Company Number: US-CADILA HEALTHCARE LIMITED-US-ZYDUS-086984

PATIENT

DRUGS (13)
  1. SIROLIMUS [Suspect]
     Active Substance: SIROLIMUS
     Indication: Venolymphatic malformation
     Dosage: 0.14 MG ORAL SOLUTION
     Route: 048
  2. SIROLIMUS [Suspect]
     Active Substance: SIROLIMUS
     Dosage: 0.18 MILLIGRAM (AT 2 MONTH)
     Route: 048
  3. SIROLIMUS [Suspect]
     Active Substance: SIROLIMUS
     Dosage: 0.22 MILLIGRAM (DAY 75)
     Route: 048
  4. SIROLIMUS [Suspect]
     Active Substance: SIROLIMUS
     Dosage: 0.3 MILLIGRAM, QD  (DAY 83)
     Route: 048
  5. SIROLIMUS [Suspect]
     Active Substance: SIROLIMUS
     Dosage: 0.4 MILLIGRAM, QD (DAY 118)
     Route: 048
  6. DOXYCYCLINE [Concomitant]
     Active Substance: DOXYCYCLINE
     Indication: Venolymphatic malformation
     Dosage: 150 MILLIGRAM, WEEKLY
     Route: 065
  7. DOXYCYCLINE [Concomitant]
     Active Substance: DOXYCYCLINE
     Dosage: 150 MILLIGRAM, AT 4 X 150MG (DAY 15?29)
     Route: 065
  8. DOXYCYCLINE [Concomitant]
     Active Substance: DOXYCYCLINE
     Dosage: 300 MILLIGRAM, (ON DAY 33)
     Route: 065
  9. DOXYCYCLINE [Concomitant]
     Active Substance: DOXYCYCLINE
     Dosage: 3 X 300MG (AT 1.5 MONTH)
     Route: 065
  10. DOXYCYCLINE [Concomitant]
     Active Substance: DOXYCYCLINE
     Dosage: 10 X 300MG (AT AROUND 2 MONTHS)
     Route: 065
  11. DOXYCYCLINE [Concomitant]
     Active Substance: DOXYCYCLINE
     Dosage: 7 X 300MG (AT AROUND 3 MONTHS)
     Route: 065
  12. BLEOMYCIN [Concomitant]
     Active Substance: BLEOMYCIN SULFATE
     Indication: Venolymphatic malformation
     Dosage: 15 UNIT
     Route: 065
  13. PENTAMIDINE [Concomitant]
     Active Substance: PENTAMIDINE
     Indication: Prophylaxis
     Dosage: UNK
     Route: 065

REACTIONS (1)
  - Pulmonary haemorrhage [Fatal]
